FAERS Safety Report 6998663-X (Version None)
Quarter: 2010Q3

REPORT INFORMATION
  Report Type: 
  Country: None (occurrence: None)
  Receive Date: 20100920
  Receipt Date: 20100323
  Transmission Date: 20110219
  Serious: No
  Sender: FDA-Public Use
  Company Number: US-ASTRAZENECA-2010SE12929

PATIENT
  Age: 56 Year
  Sex: Male
  Weight: 84.4 kg

DRUGS (16)
  1. SEROQUEL [Suspect]
     Indication: DEPRESSION
     Route: 048
  2. SEROQUEL [Suspect]
     Indication: SLEEP DISORDER
     Route: 048
  3. SEROQUEL [Suspect]
     Route: 048
     Dates: start: 20100301
  4. SEROQUEL [Suspect]
     Route: 048
     Dates: start: 20100301
  5. PRISTIQ [Concomitant]
  6. ASPIRIN [Concomitant]
  7. ACTOS [Concomitant]
     Indication: DIABETES MELLITUS
  8. SYNTHROID [Concomitant]
     Indication: HYPOTHYROIDISM
  9. ALPRAZOLAM [Concomitant]
     Dosage: AS REQUIRED
  10. METHYLPHENIDATE [Concomitant]
     Indication: ATTENTION DEFICIT/HYPERACTIVITY DISORDER
  11. METFORMIN [Concomitant]
     Indication: DIABETES MELLITUS
  12. GLIPIZIDE [Concomitant]
     Indication: DIABETES MELLITUS
  13. BYETTA [Concomitant]
     Dosage: TWO TIMES A DAY
     Route: 058
  14. SIMVASTATIN [Concomitant]
     Indication: BLOOD CHOLESTEROL ABNORMAL
  15. DEPAKOTE [Concomitant]
     Indication: FIBROMYALGIA
  16. FLUTICASONE PROPIONATE [Concomitant]
     Route: 045

REACTIONS (4)
  - DRUG EFFECT DECREASED [None]
  - FIBROMYALGIA [None]
  - SLEEP DISORDER [None]
  - THERAPEUTIC RESPONSE UNEXPECTED [None]
